FAERS Safety Report 9678789 (Version 1)
Quarter: 2013Q4

REPORT INFORMATION
  Report Type: Spontaneous
  Country: GB (occurrence: GB)
  Receive Date: 20131108
  Receipt Date: 20131108
  Transmission Date: 20140711
  Serious: Yes (Other)
  Sender: FDA-Public Use
  Company Number: GB-ASTRAZENECA-2013SE80692

PATIENT
  Age: 32 Year
  Sex: Female
  Weight: 87.1 kg

DRUGS (2)
  1. OMEPRAZOLE [Suspect]
     Indication: DYSPEPSIA
     Route: 048
     Dates: start: 20131018
  2. OMEPRAZOLE [Suspect]
     Indication: PAIN
     Route: 048
     Dates: start: 20131018

REACTIONS (3)
  - Exposure during pregnancy [Unknown]
  - Headache [Not Recovered/Not Resolved]
  - Intentional drug misuse [Unknown]
